FAERS Safety Report 5346481-0 (Version None)
Quarter: 2007Q2

REPORT INFORMATION
  Report Type: 
  Country: None (occurrence: None)
  Receive Date: 20070605
  Receipt Date: 20070529
  Transmission Date: 20071010
  Serious: Yes (Other)
  Sender: FDA-Public Use
  Company Number: ES-GILEAD-2007-0012306

PATIENT
  Age: 41 Year
  Sex: Male

DRUGS (3)
  1. EMTRIVA [Suspect]
     Route: 048
     Dates: start: 20060920, end: 20070301
  2. VIREAD [Suspect]
     Route: 048
     Dates: start: 20060920, end: 20070301
  3. VIRAMUNE [Suspect]
     Route: 048
     Dates: start: 19991020, end: 20070301

REACTIONS (3)
  - ALANINE AMINOTRANSFERASE INCREASED [None]
  - ASPARTATE AMINOTRANSFERASE INCREASED [None]
  - GAMMA-GLUTAMYLTRANSFERASE INCREASED [None]
